FAERS Safety Report 18770244 (Version 2)
Quarter: 2021Q1

REPORT INFORMATION
  Report Type: Report from Study
  Country: US (occurrence: US)
  Receive Date: 20210121
  Receipt Date: 20210303
  Transmission Date: 20210419
  Serious: Yes (Death)
  Sender: FDA-Public Use
  Company Number: US-VISTAPHARM, INC.-VER202101-000480

PATIENT
  Age: 2 Year
  Sex: Female

DRUGS (10)
  1. EPINEPHRINE. [Concomitant]
     Active Substance: EPINEPHRINE
     Indication: APNOEIC ATTACK
     Dosage: UNKNOWN
  2. HYDROCORTISONE. [Concomitant]
     Active Substance: HYDROCORTISONE
     Indication: PRODUCT USED FOR UNKNOWN INDICATION
     Dosage: UNKNOWN
  3. VALPROIC ACID. [Concomitant]
     Active Substance: VALPROIC ACID
     Indication: SEIZURE
     Dosage: UNKNOWN
  4. FOSPHENYTOIN [Concomitant]
     Active Substance: FOSPHENYTOIN
     Indication: STATUS EPILEPTICUS
     Dosage: 20 MG/KG
  5. LACTULOSE. [Suspect]
     Active Substance: LACTULOSE
     Indication: HYPERAMMONAEMIA
     Dosage: UNKNOWN (EVERY 4H VIA GASTRIC TUBE)
  6. L?CARNITINE [Concomitant]
     Active Substance: LEVOCARNITINE
     Indication: SEIZURE
     Dosage: UNKNOWN
  7. SODIUM BICARBONATE. [Concomitant]
     Active Substance: SODIUM BICARBONATE
     Indication: APNOEIC ATTACK
     Dosage: UNKNOWN (BOLUS)
  8. LORAZEPAM. [Concomitant]
     Active Substance: LORAZEPAM
     Indication: STATUS EPILEPTICUS
     Dosage: UNKNOWN (2 DOSES)
  9. LEVETIRACETAM. [Concomitant]
     Active Substance: LEVETIRACETAM
     Indication: STATUS EPILEPTICUS
     Dosage: 20 MG/KG
  10. DEXTROSE. [Concomitant]
     Active Substance: DEXTROSE
     Indication: PRODUCT USED FOR UNKNOWN INDICATION
     Dosage: DEXTROSE 5% IN WATER DRIP

REACTIONS (3)
  - Electrolyte imbalance [Fatal]
  - Extra dose administered [Fatal]
  - Product use in unapproved indication [Unknown]
